FAERS Safety Report 25503267 (Version 1)
Quarter: 2025Q3

REPORT INFORMATION
  Report Type: Report from Study
  Country: CN (occurrence: CN)
  Receive Date: 20250702
  Receipt Date: 20250702
  Transmission Date: 20251020
  Serious: Yes (Hospitalization, Other)
  Sender: SANDOZ
  Company Number: CN-SANDOZ-SDZ2025CN041365

PATIENT
  Sex: Female

DRUGS (1)
  1. ZOLEDRONIC ACID [Suspect]
     Active Substance: ZOLEDRONIC ACID
     Indication: Osteoporosis
     Route: 041

REACTIONS (4)
  - Haemorrhoid operation [Unknown]
  - Thyroidectomy [Unknown]
  - Back pain [Recovering/Resolving]
  - Drug ineffective [Unknown]
